FAERS Safety Report 9517934 (Version 1)
Quarter: 2013Q1

REPORT INFORMATION
  Report Type: Spontaneous
  Country: US (occurrence: None)
  Receive Date: 20130305
  Receipt Date: 20130305
  Transmission Date: 20140127
  Serious: Yes (Other)
  Sender: FDA-Public Use
  Company Number: 163-21880-12114106

PATIENT
  Age: 70 Year
  Sex: Female

DRUGS (4)
  1. REVLIMID [Suspect]
     Indication: PRODUCT USED FOR UNKNOWN INDICATION
     Dosage: 5 MG, 14 IN 21 D, PO
     Route: 048
     Dates: start: 20100414
  2. VELCADE [Suspect]
  3. ARANESP (DARBEPOETIN ALFA) [Concomitant]
  4. NEUPOGEN (FILGRASTIM) [Concomitant]

REACTIONS (2)
  - Red blood cell count decreased [None]
  - White blood cell count decreased [None]
